FAERS Safety Report 9917658 (Version 2)
Quarter: 2014Q1

REPORT INFORMATION
  Report Type: Spontaneous
  Country: US (occurrence: US)
  Receive Date: 20140221
  Receipt Date: 20140310
  Transmission Date: 20141002
  Serious: No
  Sender: FDA-Public Use
  Company Number: US-009507513-1402USA009080

PATIENT
  Sex: Female

DRUGS (6)
  1. PEGINTRON [Suspect]
     Indication: HEPATITIS C
     Dosage: 0.5 ML, QW
     Dates: start: 20140214
  2. REBETOL [Suspect]
     Indication: HEPATITIS C
     Dosage: 1800 MG AM (1800AM/1200PM)
     Route: 048
     Dates: start: 20140214
  3. REBETOL [Suspect]
     Dosage: 1200 MG PM, (1800AM/1200PM)
     Route: 048
     Dates: start: 20140214
  4. HUMALOG [Concomitant]
     Dosage: DOSE: SLIDING SCALE
  5. LANTUS [Concomitant]
     Dosage: DOSE: SLIDING SCALE
  6. SOVALDI [Concomitant]
     Dosage: 400 MG, DAILY

REACTIONS (4)
  - Influenza like illness [Unknown]
  - Headache [Unknown]
  - Asthenia [Unknown]
  - Malaise [Unknown]
